FAERS Safety Report 22324543 (Version 1)
Quarter: 2023Q2

REPORT INFORMATION
  Report Type: Spontaneous
  Country: US (occurrence: None)
  Receive Date: 20230513
  Receipt Date: 20230513
  Transmission Date: 20230721
  Serious: No
  Sender: FDA-Public Use
  Company Number: None

PATIENT
  Age: 33 Year
  Sex: Female
  Weight: 65.25 kg

DRUGS (1)
  1. TYLENOL WITH CODEINE [Suspect]
     Active Substance: ACETAMINOPHEN\CODEINE PHOSPHATE
     Indication: Tooth extraction
     Dates: start: 20230217, end: 20230217

REACTIONS (5)
  - Nausea [None]
  - Dizziness [None]
  - Fatigue [None]
  - Musculoskeletal disorder [None]
  - Therapy cessation [None]

NARRATIVE: CASE EVENT DATE: 20230217
